FAERS Safety Report 19787184 (Version 2)
Quarter: 2021Q3

REPORT INFORMATION
  Report Type: Spontaneous
  Country: MA (occurrence: MA)
  Receive Date: 20210903
  Receipt Date: 20210915
  Transmission Date: 20211014
  Serious: Yes (Other)
  Sender: FDA-Public Use
  Company Number: MA-ALLERGAN-2130713US

PATIENT
  Sex: Male

DRUGS (1)
  1. OZURDEX [Suspect]
     Active Substance: DEXAMETHASONE
     Indication: MACULAR OEDEMA
     Dosage: 0.7 MG, SINGLE
     Route: 031

REACTIONS (5)
  - Cataract subcapsular [Unknown]
  - Device placement issue [Unknown]
  - Complication of device insertion [Unknown]
  - Posterior capsule rupture [Unknown]
  - Visual acuity reduced [Unknown]
